FAERS Safety Report 10867168 (Version 2)
Quarter: 2015Q1

REPORT INFORMATION
  Report Type: Spontaneous
  Country: US (occurrence: US)
  Receive Date: 20150225
  Receipt Date: 20150306
  Transmission Date: 20150721
  Serious: Yes (Hospitalization, Other)
  Sender: FDA-Public Use
  Company Number: US-AMGEN-USASP2015016145

PATIENT
  Age: 72 Year
  Sex: Male
  Weight: 79.37 kg

DRUGS (5)
  1. PROBIOTICS                         /07325001/ [Concomitant]
  2. PROLIA [Suspect]
     Active Substance: DENOSUMAB
     Indication: PRODUCT USED FOR UNKNOWN INDICATION
     Dosage: UNK, Q6MO
     Route: 058
     Dates: start: 20130910
  3. TELMISARTAN. [Concomitant]
     Active Substance: TELMISARTAN
  4. PROTONIX                           /00661201/ [Concomitant]
     Dosage: 40 MG, BID
  5. AVODART [Concomitant]
     Active Substance: DUTASTERIDE

REACTIONS (8)
  - Anaemia [Unknown]
  - Colitis [Unknown]
  - Chest pain [Unknown]
  - Dyspnoea [Unknown]
  - Sinus tachycardia [Unknown]
  - Pericarditis [Recovered/Resolved]
  - Wound infection [Unknown]
  - Pleurisy [Unknown]

NARRATIVE: CASE EVENT DATE: 20150119
